FAERS Safety Report 8108527-6 (Version None)
Quarter: 2012Q1

REPORT INFORMATION
  Report Type: 
  Country: None (occurrence: None)
  Receive Date: 20120202
  Receipt Date: 20120127
  Transmission Date: 20120608
  Serious: Yes (Death, Other)
  Sender: FDA-Public Use
  Company Number: PHHY2012AU007598

PATIENT
  Age: 62 Year
  Sex: Female

DRUGS (1)
  1. CERTICAN [Suspect]
     Indication: CORONARY ARTERY BYPASS

REACTIONS (6)
  - CHEST PAIN [None]
  - ARTERIOSPASM CORONARY [None]
  - MYOCARDIAL INFARCTION [None]
  - ELECTROCARDIOGRAM ST SEGMENT ELEVATION [None]
  - CARDIAC DEATH [None]
  - CORONARY ARTERY THROMBOSIS [None]
